FAERS Safety Report 11538708 (Version 1)
Quarter: 2015Q3

REPORT INFORMATION
  Report Type: Spontaneous
  Country: US (occurrence: None)
  Receive Date: 20150921
  Receipt Date: 20150921
  Transmission Date: 20151125
  Serious: Yes (Hospitalization)
  Sender: FDA-Public Use
  Company Number: None

PATIENT
  Age: 48 Year
  Sex: Female
  Weight: 49.9 kg

DRUGS (8)
  1. LOW DOSE NALTREXONE [Concomitant]
     Active Substance: NALTREXONE
  2. VITAMIN D [Concomitant]
     Active Substance: CHOLECALCIFEROL
  3. TECFIDERA [Suspect]
     Active Substance: DIMETHYL FUMARATE
     Indication: MULTIPLE SCLEROSIS
     Route: 048
     Dates: start: 20150629, end: 20150711
  4. ESTRIOL CREAM [Concomitant]
  5. TEGRETOL [Concomitant]
     Active Substance: CARBAMAZEPINE
  6. FISH OIL [Concomitant]
     Active Substance: FISH OIL
  7. GABAPENTIN. [Concomitant]
     Active Substance: GABAPENTIN
  8. PROBIOTICS MULTI VITAMIN [Concomitant]

REACTIONS (5)
  - Feeling cold [None]
  - Pyrexia [None]
  - Chills [None]
  - Feeling abnormal [None]
  - Fatigue [None]

NARRATIVE: CASE EVENT DATE: 20150710
